FAERS Safety Report 11773787 (Version 3)
Quarter: 2018Q1

REPORT INFORMATION
  Report Type: Report from Study
  Country: JP (occurrence: JP)
  Receive Date: 20151124
  Receipt Date: 20180205
  Transmission Date: 20180508
  Serious: Yes (Hospitalization)
  Sender: FDA-Public Use
  Company Number: JP-EISAI MEDICAL RESEARCH-EC-2015-012241

PATIENT
  Age: 69 Year
  Sex: Female
  Weight: 46 kg

DRUGS (21)
  1. LENVIMA [Suspect]
     Active Substance: LENVATINIB
     Route: 048
     Dates: start: 20160311, end: 20160414
  2. LENVIMA [Suspect]
     Active Substance: LENVATINIB
     Route: 048
     Dates: start: 20160805, end: 20160901
  3. LEVOTHYROXINE SODIUM HYDRATE [Concomitant]
     Active Substance: LEVOTHYROXINE SODIUM
  4. LENVIMA [Suspect]
     Active Substance: LENVATINIB
     Route: 048
     Dates: start: 20160422, end: 20160623
  5. LENVIMA [Suspect]
     Active Substance: LENVATINIB
     Route: 048
     Dates: start: 20151022, end: 20151112
  6. LENVIMA [Suspect]
     Active Substance: LENVATINIB
     Route: 048
     Dates: start: 20151119, end: 20151210
  7. DIART [Concomitant]
     Active Substance: AZOSEMIDE
  8. ELIQUIS [Concomitant]
     Active Substance: APIXABAN
  9. LENVIMA [Suspect]
     Active Substance: LENVATINIB
     Route: 048
     Dates: start: 20160701, end: 20160728
  10. LENVIMA [Suspect]
     Active Substance: LENVATINIB
     Route: 048
     Dates: start: 20160909
  11. TAKEPRON [Concomitant]
     Active Substance: LANSOPRAZOLE
  12. CALCIUM LACTATE HYDRATE [Concomitant]
     Active Substance: CALCIUM LACTATE
  13. KERATINAMIN [Concomitant]
     Active Substance: UREA
  14. RANMARK [Concomitant]
     Active Substance: DENOSUMAB
  15. SELARA [Concomitant]
     Active Substance: EPLERENONE
  16. CALFINA [Concomitant]
     Active Substance: ALFACALCIDOL
  17. OLMETEC [Concomitant]
     Active Substance: OLMESARTAN MEDOXOMIL
  18. LENVIMA [Suspect]
     Active Substance: LENVATINIB
     Route: 048
     Dates: start: 20151217, end: 20160303
  19. XARELTO [Concomitant]
     Active Substance: RIVAROXABAN
  20. DENOTAS [Concomitant]
     Active Substance: CALCIUM CARBONATE\CHOLECALCIFEROL\MAGNESIUM CARBONATE
  21. LENVIMA [Suspect]
     Active Substance: LENVATINIB
     Indication: POORLY DIFFERENTIATED THYROID CARCINOMA
     Route: 048
     Dates: start: 20150916, end: 20151015

REACTIONS (1)
  - Fatigue [Recovering/Resolving]

NARRATIVE: CASE EVENT DATE: 20151105
